FAERS Safety Report 8236741-8 (Version None)
Quarter: 2012Q1

REPORT INFORMATION
  Report Type: 
  Country: None (occurrence: None)
  Receive Date: 20120323
  Receipt Date: 20120308
  Transmission Date: 20120608
  Serious: Yes (Hospitalization)
  Sender: FDA-Public Use
  Company Number: 20120147

PATIENT
  Age: 67 Year
  Sex: Female

DRUGS (1)
  1. METHYLENE BLUE INJECTION, USP (0310-10) 10 MG/ML [Suspect]
     Indication: INVESTIGATION
     Dosage: SUBDERMAL
     Route: 059

REACTIONS (7)
  - SKIN NECROSIS [None]
  - PRODUCT CONTAMINATION [None]
  - IMPAIRED HEALING [None]
  - MYCOPLASMA INFECTION [None]
  - OFF LABEL USE [None]
  - CORYNEBACTERIUM INFECTION [None]
  - BREAST NECROSIS [None]
